FAERS Safety Report 12217190 (Version 1)
Quarter: 2016Q1

REPORT INFORMATION
  Report Type: Spontaneous
  Country: US (occurrence: None)
  Receive Date: 20160328
  Receipt Date: 20160328
  Transmission Date: 20160526
  Serious: No
  Sender: FDA-Public Use
  Company Number: None

PATIENT
  Age: 31 Year
  Sex: Female
  Weight: 72.58 kg

DRUGS (2)
  1. MIRENA [Suspect]
     Active Substance: LEVONORGESTREL
     Dates: start: 20150311, end: 20160321
  2. PRENATAL CALCIUM [Concomitant]

REACTIONS (2)
  - Ectopic pregnancy [None]
  - Uterine perforation [None]

NARRATIVE: CASE EVENT DATE: 20160321
